FAERS Safety Report 8595338-0 (Version None)
Quarter: 2012Q3

REPORT INFORMATION
  Report Type: 
  Country: None (occurrence: None)
  Receive Date: 20120815
  Receipt Date: 20120814
  Transmission Date: 20120928
  Serious: Yes (Other)
  Sender: FDA-Public Use
  Company Number: PHEH2012US015857

PATIENT
  Sex: Male

DRUGS (1)
  1. ZOMETA [Suspect]
     Indication: PROSTATIC DISORDER
     Route: 042
     Dates: start: 20110622

REACTIONS (1)
  - PROSTATIC SPECIFIC ANTIGEN INCREASED [None]
